FAERS Safety Report 21877448 (Version 2)
Quarter: 2023Q1

REPORT INFORMATION
  Report Type: Spontaneous
  Country: CN (occurrence: None)
  Receive Date: 20230118
  Receipt Date: 20230201
  Transmission Date: 20230417
  Serious: Yes (Other)
  Sender: FDA-Public Use
  Company Number: CN-Unichem Pharmaceuticals (USA) Inc-UCM202301-000063

PATIENT
  Age: 37 Year
  Sex: Male

DRUGS (3)
  1. ALLOPURINOL [Suspect]
     Active Substance: ALLOPURINOL
     Indication: Hyperuricaemia
     Dates: start: 202006, end: 202111
  2. ALLOPURINOL [Suspect]
     Active Substance: ALLOPURINOL
     Dates: start: 202006
  3. ALLOPURINOL [Suspect]
     Active Substance: ALLOPURINOL
     Dates: start: 202006

REACTIONS (2)
  - Pulmonary sarcoidosis [Recovered/Resolved]
  - Drug reaction with eosinophilia and systemic symptoms [Recovered/Resolved]
